FAERS Safety Report 18031591 (Version 2)
Quarter: 2020Q4

REPORT INFORMATION
  Report Type: Spontaneous
  Country: US (occurrence: US)
  Receive Date: 20200716
  Receipt Date: 20201221
  Transmission Date: 20210113
  Serious: No
  Sender: FDA-Public Use
  Company Number: US-PFIZER INC-2020106308

PATIENT
  Age: 64 Year
  Sex: Male

DRUGS (1)
  1. LYRICA [Suspect]
     Active Substance: PREGABALIN
     Indication: NEUROPATHY PERIPHERAL
     Dosage: 50 MG, 3X/DAY [1 (ONE) CAPSULE BY MOUTH THREE TIMES DAILY ]
     Route: 048

REACTIONS (3)
  - Intentional product misuse [Unknown]
  - Off label use [Unknown]
  - Pain [Unknown]
